FAERS Safety Report 15501325 (Version 1)
Quarter: 2020Q3

REPORT INFORMATION
  Report Type: Spontaneous
  Country: IT (occurrence: IT)
  Receive Date: 20181015
  Receipt Date: 20181015
  Transmission Date: 20201104
  Serious: Yes (Other)
  Sender: FDA-Public Use
  Company Number: PHHY2018IT121439

PATIENT
  Age: 61 Year
  Sex: Female

DRUGS (10)
  1. LEVOFLOXACIN. [Suspect]
     Active Substance: LEVOFLOXACIN
     Indication: ANTIBIOTIC THERAPY
     Route: 065
  2. VANCOMYCIN [Suspect]
     Active Substance: VANCOMYCIN
     Indication: ANTIBIOTIC THERAPY
     Route: 065
  3. CILASTATIN [Suspect]
     Active Substance: CILASTATIN
     Indication: ANTIBIOTIC THERAPY
     Route: 065
  4. AMIKACIN. [Suspect]
     Active Substance: AMIKACIN
     Indication: ANTIBIOTIC THERAPY
     Route: 065
  5. AMPICILLIN [Suspect]
     Active Substance: AMPICILLIN
     Indication: ANTIBIOTIC THERAPY
     Route: 065
  6. TACROLIMUS. [Suspect]
     Active Substance: TACROLIMUS
     Indication: LIVER TRANSPLANT
     Route: 065
  7. GENTAMICIN. [Suspect]
     Active Substance: GENTAMICIN
     Indication: ANTIBIOTIC THERAPY
     Route: 065
  8. IMIPENEM [Suspect]
     Active Substance: IMIPENEM
     Indication: ANTIBIOTIC THERAPY
     Route: 065
  9. CEFTRIAXONE. [Suspect]
     Active Substance: CEFTRIAXONE
     Indication: ANTIBIOTIC THERAPY
     Route: 065
  10. MEROPENEM. [Suspect]
     Active Substance: MEROPENEM
     Indication: ANTIBIOTIC THERAPY
     Route: 065

REACTIONS (3)
  - Guillain-Barre syndrome [Recovered/Resolved]
  - Cytomegalovirus infection reactivation [Recovered/Resolved]
  - Immune reconstitution inflammatory syndrome [Recovered/Resolved]

NARRATIVE: CASE EVENT DATE: 20170216
